FAERS Safety Report 15007958 (Version 1)
Quarter: 2018Q2

REPORT INFORMATION
  Report Type: Spontaneous
  Country: AR (occurrence: AR)
  Receive Date: 20180613
  Receipt Date: 20180613
  Transmission Date: 20180711
  Serious: Yes (Death, Other)
  Sender: FDA-Public Use
  Company Number: PHHY2018AR020550

PATIENT
  Age: 67 Year
  Sex: Female

DRUGS (1)
  1. METHOTREXATE. [Suspect]
     Active Substance: METHOTREXATE
     Indication: SYSTEMIC SCLERODERMA
     Dosage: 10 MG, QW
     Route: 065

REACTIONS (5)
  - Pancytopenia [Unknown]
  - Bone marrow toxicity [Unknown]
  - Stomatitis [Unknown]
  - Toxicity to various agents [Fatal]
  - Product use in unapproved indication [Unknown]
